FAERS Safety Report 4885339-8 (Version None)
Quarter: 2006Q1

REPORT INFORMATION
  Report Type: 
  Country: None (occurrence: None)
  Receive Date: 20060119
  Receipt Date: 20060106
  Transmission Date: 20060701
  Serious: Yes (Hospitalization)
  Sender: FDA-Public Use
  Company Number: 2006UW00330

PATIENT
  Age: 46 Year
  Sex: Female
  Weight: 46.8 kg

DRUGS (4)
  1. ACCOLATE [Suspect]
     Indication: SCAR
     Route: 048
     Dates: end: 20051201
  2. EXTRA STRENGTH TYLENOL [Concomitant]
     Dosage: 2 TABS Q3H
  3. FOSAMAX [Concomitant]
  4. VITAMINS [Concomitant]

REACTIONS (9)
  - ABDOMINAL PAIN UPPER [None]
  - BLOOD BILIRUBIN INCREASED [None]
  - CHILLS [None]
  - FATIGUE [None]
  - HEPATIC ENZYME INCREASED [None]
  - HEPATOMEGALY [None]
  - MALAISE [None]
  - NAUSEA [None]
  - PYREXIA [None]
